FAERS Safety Report 23846740 (Version 2)
Quarter: 2024Q2

REPORT INFORMATION
  Report Type: Spontaneous
  Country: US (occurrence: US)
  Receive Date: 20240513
  Receipt Date: 20240606
  Transmission Date: 20240716
  Serious: Yes (Other)
  Sender: FDA-Public Use
  Company Number: US-BRISTOL-MYERS SQUIBB COMPANY-2024-072883

PATIENT
  Age: 77 Year
  Sex: Male

DRUGS (10)
  1. REVLIMID [Suspect]
     Active Substance: LENALIDOMIDE
     Indication: Plasma cell myeloma
     Dosage: ONCE DAILY FOR 14 DAYS AND OFF 14 DAYS
     Route: 048
     Dates: start: 20220825
  2. AMBIEN [Concomitant]
     Active Substance: ZOLPIDEM TARTRATE
     Indication: Product used for unknown indication
  3. CIALIS [Concomitant]
     Active Substance: TADALAFIL
     Indication: Product used for unknown indication
  4. COENZYME Q10 [Concomitant]
     Active Substance: DIETARY SUPPLEMENT\UBIDECARENONE
     Indication: Product used for unknown indication
     Dosage: 100 MG SOFTGEL
  5. ELIQUIS [Concomitant]
     Active Substance: APIXABAN
     Indication: Product used for unknown indication
  6. FINASTERIDE [Concomitant]
     Active Substance: FINASTERIDE
     Indication: Product used for unknown indication
  7. LORAZEPAM [Concomitant]
     Active Substance: LORAZEPAM
     Indication: Product used for unknown indication
  8. HYDROCHLOROTHIAZIDE\TRIAMTERENE [Concomitant]
     Active Substance: HYDROCHLOROTHIAZIDE\TRIAMTERENE
     Indication: Product used for unknown indication
     Dosage: 37.5/25 MG
  9. ZOFRAN [Concomitant]
     Active Substance: ONDANSETRON HYDROCHLORIDE
     Indication: Product used for unknown indication
  10. BALANCED B COMPLEX [BIOTIN;CALCIUM PANTOTHENATE;CYANOCOBALAMIN;FOLIC A [Concomitant]
     Indication: Product used for unknown indication

REACTIONS (6)
  - Neutropenia [Unknown]
  - Thrombocytopenia [Unknown]
  - Diarrhoea [Not Recovered/Not Resolved]
  - Off label use [Unknown]
  - White blood cell count decreased [Unknown]
  - Drug ineffective [Unknown]

NARRATIVE: CASE EVENT DATE: 20240508
